FAERS Safety Report 24935925 (Version 1)
Quarter: 2025Q1

REPORT INFORMATION
  Report Type: Report from Study
  Country: US (occurrence: US)
  Receive Date: 20250206
  Receipt Date: 20250206
  Transmission Date: 20250409
  Serious: Yes (Other)
  Sender: EXELIXIS
  Company Number: US-EXELIXIS-EXL-2024-000567

PATIENT
  Sex: Male
  Weight: 51.791 kg

DRUGS (5)
  1. CABOMETYX [Suspect]
     Active Substance: CABOZANTINIB S-MALATE
     Indication: Malignant neoplasm of renal pelvis
     Route: 048
     Dates: start: 202107
  2. CABOMETYX [Suspect]
     Active Substance: CABOZANTINIB S-MALATE
     Dosage: 40 MG, QD
     Route: 048
     Dates: start: 20240830
  3. LENVIMA [Suspect]
     Active Substance: LENVATINIB
     Indication: Malignant neoplasm of renal pelvis
     Dates: start: 202407
  4. CALCITRIOL [Concomitant]
     Active Substance: CALCITRIOL
  5. NIFEDIPINE [Concomitant]
     Active Substance: NIFEDIPINE

REACTIONS (6)
  - Renal impairment [Unknown]
  - Blood pressure increased [Recovering/Resolving]
  - Diarrhoea [Recovering/Resolving]
  - Weight decreased [Recovering/Resolving]
  - Nasopharyngitis [Not Recovered/Not Resolved]
  - Off label use [Unknown]
